FAERS Safety Report 4520229-1 (Version None)
Quarter: 2004Q4

REPORT INFORMATION
  Report Type: 
  Country: None (occurrence: None)
  Receive Date: 20041029
  Receipt Date: 20040811
  Transmission Date: 20050328
  Serious: Yes (Disabling)
  Sender: FDA-Public Use
  Company Number: WAES 0408USA01024

PATIENT
  Age: 46 Year
  Sex: Female

DRUGS (7)
  1. EMEND [Suspect]
     Indication: PROPHYLAXIS OF NAUSEA AND VOMITING
     Dosage: 125 MG/1X/PO; 80 MG/DAILY/PO
     Route: 048
     Dates: start: 20040711, end: 20040712
  2. EMEND [Suspect]
     Indication: PROPHYLAXIS OF NAUSEA AND VOMITING
     Dosage: 125 MG/1X/PO; 80 MG/DAILY/PO
     Route: 048
     Dates: start: 20040710
  3. DIFLUCAN [Concomitant]
  4. ZOFRAN [Concomitant]
  5. [THERAPY UNSPECIFIED] [Concomitant]
  6. DEXAMETHASONE [Concomitant]
  7. LORAZEPAM [Concomitant]

REACTIONS (1)
  - COUGH [None]
